FAERS Safety Report 6255091-2 (Version None)
Quarter: 2009Q3

REPORT INFORMATION
  Report Type: 
  Country: None (occurrence: None)
  Receive Date: 20090702
  Receipt Date: 20090623
  Transmission Date: 20100115
  Serious: Yes (Other)
  Sender: FDA-Public Use
  Company Number: CL-PFIZER INC-2009225047

PATIENT
  Age: 44 Year

DRUGS (4)
  1. ZYVOX [Suspect]
     Indication: STAPHYLOCOCCAL SEPSIS
     Dosage: 600 MG, 2X/DAY
     Dates: start: 20090529, end: 20090614
  2. GANCICLOVIR [Concomitant]
  3. FLUCONAZOLE [Concomitant]
  4. NEFERSIL [Concomitant]

REACTIONS (1)
  - HYPOKALAEMIA [None]
